FAERS Safety Report 21944886 (Version 1)
Quarter: 2023Q1

REPORT INFORMATION
  Report Type: Spontaneous
  Country: PL (occurrence: PL)
  Receive Date: 20230202
  Receipt Date: 20230202
  Transmission Date: 20230418
  Serious: Yes (Death, Other)
  Sender: FDA-Public Use
  Company Number: PL-CELLTRION INC.-2023PL001943

PATIENT

DRUGS (28)
  1. RITUXIMAB [Suspect]
     Active Substance: RITUXIMAB
     Indication: Primary mediastinal large B-cell lymphoma stage III
     Dosage: 375 MG/M2; DAY 1 (R-COPADM)
  2. METHOTREXATE [Suspect]
     Active Substance: METHOTREXATE
     Indication: Primary mediastinal large B-cell lymphoma stage III
     Dosage: 15 MILLIGRAM; DAY 1 (PRE-PHASE COP)
     Route: 037
  3. METHOTREXATE [Suspect]
     Active Substance: METHOTREXATE
     Dosage: 1.0 GRAM PER SQUARE METRE IN 500 ML DEXTROSE 5%; DAY 1 (R-COPADM)
     Route: 042
  4. METHOTREXATE [Suspect]
     Active Substance: METHOTREXATE
     Dosage: 15 MG; DAY 2 (R-COPADM)
     Route: 037
  5. HYDROCORTISONE [Suspect]
     Active Substance: HYDROCORTISONE
     Indication: Primary mediastinal large B-cell lymphoma stage III
     Dosage: 15 MG; DAY 1 (PRE-PHASE COP)
     Route: 037
  6. HYDROCORTISONE [Suspect]
     Active Substance: HYDROCORTISONE
     Dosage: 15 MG; DAY 2 (R-COPADM)
     Route: 037
  7. VINCRISTINE [Suspect]
     Active Substance: VINCRISTINE
     Indication: Primary mediastinal large B-cell lymphoma stage III
     Dosage: 1.0 MG/M2 (MAX SINGLE DOSE 2.0 MG/M2); DAY 1 (PRE-PHASE COP)
     Route: 040
  8. VINCRISTINE [Suspect]
     Active Substance: VINCRISTINE
     Dosage: 2.0 MG/M2; DAY 1 (R-COPADM)
     Route: 040
  9. CYCLOPHOSPHAMIDE [Suspect]
     Active Substance: CYCLOPHOSPHAMIDE
     Indication: Primary mediastinal large B-cell lymphoma stage III
     Dosage: 300 MG/M2/ DOSE AS AN INFUSION OVER 15 MINS; DAY 1 (PRE-PHASE COP)
  10. CYCLOPHOSPHAMIDE [Suspect]
     Active Substance: CYCLOPHOSPHAMIDE
     Dosage: 200 (1STR-COPADM) MG/M2/DOSE EVERY 12 HR AS AN INFUSION OVER 15 MINS.
  11. CYCLOPHOSPHAMIDE [Suspect]
     Active Substance: CYCLOPHOSPHAMIDE
     Dosage: 250 (2ND R-COPADM) MG/M2/DOSE EVERY 12 HR AS AN INFUSION OVER 15 MINS
  12. LEUCOVORIN [Suspect]
     Active Substance: LEUCOVORIN
     Indication: Primary mediastinal large B-cell lymphoma stage III
     Dosage: 15 MG/M2, ORALLY EVERY 1 H UNTIL MTX LEVEL IS BELOW 0.15 MMOL/L; DAY 2 (R-COPADM)
     Route: 048
  13. LEUCOVORIN [Suspect]
     Active Substance: LEUCOVORIN
     Dosage: 15 MG/M2, ORALLY EVERY 1 H UNTIL MTX LEVEL IS BELOW 0.15 MMOL/L; DAY 3 (R-COPADM)
     Route: 048
  14. LEUCOVORIN [Suspect]
     Active Substance: LEUCOVORIN
     Dosage: 15 MG/M2, ORALLY EVERY 1 H UNTIL MTX LEVEL IS BELOW 0.15 MMOL/L; DAY 4 (R-COPADM)
     Route: 048
  15. PREDNISONE [Suspect]
     Active Substance: PREDNISONE
     Indication: Primary mediastinal large B-cell lymphoma stage III
     Dosage: 60 MG/M2/DAY (DIVIDED INTO BID DOSES) ORALLY; DAY 1 (PRE-PHASE COP)
     Route: 048
  16. PREDNISONE [Suspect]
     Active Substance: PREDNISONE
     Dosage: 60 MG/M2/DAY (DIVIDED INTO BID DOSES) ORALLY; DAY 2 (PRE-PHASE COP)
     Route: 048
  17. PREDNISONE [Suspect]
     Active Substance: PREDNISONE
     Dosage: 60 MG/M2/DAY (DIVIDED INTO BID DOSES) ORALLY; DAY 3 (PRE-PHASE COP)
     Route: 048
  18. PREDNISONE [Suspect]
     Active Substance: PREDNISONE
     Dosage: 60 MG/M2/DAY (DIVIDED INTO BID DOSES) ORALLY; DAY 4 (PRE-PHASE COP)
     Route: 048
  19. PREDNISONE [Suspect]
     Active Substance: PREDNISONE
     Dosage: 60 MG/M2/DAY (DIVIDED INTO BID DOSES) ORALLY; DAY 5 (PRE-PHASE COP)
     Route: 048
  20. PREDNISONE [Suspect]
     Active Substance: PREDNISONE
     Dosage: 60 MG/M2/DAY (DIVIDED INTO BID DOSES) ORALLY; DAY 6 (PRE-PHASE COP)
     Route: 048
  21. PREDNISONE [Suspect]
     Active Substance: PREDNISONE
     Dosage: 60 MG/M2/DAY (DIVIDED INTO BID DOSES) ORALLY; DAY 7 (PRE-PHASE COP)
     Route: 048
  22. PREDNISONE [Suspect]
     Active Substance: PREDNISONE
     Dosage: 60 MG/M2/DAY (DIVIDED INTO BID DOSES) ORALLY; DAY 1 (R-COPADM)
     Route: 048
  23. PREDNISONE [Suspect]
     Active Substance: PREDNISONE
     Dosage: 60 MG/M2/DAY (DIVIDED INTO BID DOSES) ORALLY; DAY 2 (R-COPADM)
     Route: 048
  24. PREDNISONE [Suspect]
     Active Substance: PREDNISONE
     Dosage: 60 MG/M2/DAY (DIVIDED INTO BID DOSES) ORALLY; DAY 3 (R-COPADM)
     Route: 048
  25. PREDNISONE [Suspect]
     Active Substance: PREDNISONE
     Dosage: 60 MG/M2/DAY (DIVIDED INTO BID DOSES) ORALLY; DAY 4 (R-COPADM)
     Route: 048
  26. PREDNISONE [Suspect]
     Active Substance: PREDNISONE
     Dosage: 60 MG/M2/DAY (DIVIDED INTO BID DOSES) ORALLY; DAY 5 (R-COPADM)
     Route: 048
  27. PREDNISONE [Suspect]
     Active Substance: PREDNISONE
     Dosage: 60 MG/M2/DAY (DIVIDED INTO BID DOSES) ORALLY; DAY 6 (R-COPADM); TRAIL TO ZERO OVER 3 DAYS
     Route: 048
  28. DOXORUBICIN [Suspect]
     Active Substance: DOXORUBICIN
     Indication: Primary mediastinal large B-cell lymphoma stage III
     Dosage: 60 MG/M2/DAY IN 1-H INFUSION; DAY 2 (R-COPADM)

REACTIONS (9)
  - Death [Fatal]
  - Leukopenia [Unknown]
  - Febrile neutropenia [Unknown]
  - Anaemia [Unknown]
  - Thrombocytopenia [Unknown]
  - Oral disorder [Unknown]
  - Urinary tract infection [Unknown]
  - Hypertension [Unknown]
  - Therapy non-responder [Unknown]
